FAERS Safety Report 9001435 (Version 1)
Quarter: 2013Q1

REPORT INFORMATION
  Report Type: Spontaneous
  Country: US (occurrence: US)
  Receive Date: 20130107
  Receipt Date: 20130107
  Transmission Date: 20140127
  Serious: Yes (Hospitalization)
  Sender: FDA-Public Use
  Company Number: US-009507513-1301USA001940

PATIENT
  Age: 89 Year
  Sex: Female

DRUGS (2)
  1. MONTELUKAST SODIUM [Suspect]
     Indication: ILL-DEFINED DISORDER
     Dosage: 120 MG, QD
     Route: 048
  2. ATARAX (HYDROXYZINE HYDROCHLORIDE) [Suspect]

REACTIONS (2)
  - Chorea [Unknown]
  - Aggression [Unknown]
